FAERS Safety Report 9934424 (Version 1)
Quarter: 2014Q1

REPORT INFORMATION
  Report Type: Spontaneous
  Country: US (occurrence: US)
  Receive Date: 20140228
  Receipt Date: 20140228
  Transmission Date: 20141002
  Serious: Yes (Hospitalization)
  Sender: FDA-Public Use
  Company Number: US-BAXTER-2014BAX009012

PATIENT
  Sex: Female

DRUGS (2)
  1. DIANEAL LOW CALCIUM [Suspect]
     Indication: PERITONEAL DIALYSIS
     Route: 033
     Dates: start: 20090102, end: 20131129
  2. EXTRANEAL [Suspect]
     Indication: PERITONEAL DIALYSIS
     Dosage: LAST FILL
     Route: 033
     Dates: start: 20090102, end: 20131129

REACTIONS (4)
  - Peritonitis [Recovered/Resolved]
  - Colitis [Recovered/Resolved]
  - Hernia [Unknown]
  - Peritoneal dialysis complication [Unknown]
